FAERS Safety Report 4731085-0 (Version None)
Quarter: 2005Q3

REPORT INFORMATION
  Report Type: 
  Country: None (occurrence: None)
  Receive Date: 20050726
  Receipt Date: 20041004
  Transmission Date: 20060218
  Serious: Yes (Hospitalization)
  Sender: FDA-Public Use
  Company Number: 05FRA0050

PATIENT
  Sex: Male

DRUGS (7)
  1. AGGRASTAT [Suspect]
     Indication: ANGINA UNSTABLE
     Dosage: 0.4 UG/KG/MIN 30 MIN FOLLOWED BY 0.1 UG/KG/MIN
  2. ASPIRIN [Concomitant]
  3. ENOXAPARIN SODIUM [Concomitant]
  4. HEPARIN [Concomitant]
  5. CALCIUM CHANNEL BLOCKER(CALCIUM CHANNEL BLOCKERS) [Concomitant]
  6. NITROGLYCERIN [Concomitant]
  7. .. [Suspect]

REACTIONS (1)
  - THROMBOCYTOPENIA [None]
